FAERS Safety Report 7433902-2 (Version None)
Quarter: 2011Q2

REPORT INFORMATION
  Report Type: 
  Country: None (occurrence: None)
  Receive Date: 20110425
  Receipt Date: 20110411
  Transmission Date: 20111010
  Serious: Yes (Hospitalization)
  Sender: FDA-Public Use
  Company Number: US-ELI_LILLY_AND_COMPANY-US201007001283

PATIENT
  Sex: Female

DRUGS (20)
  1. FORTEO [Suspect]
     Indication: OSTEOPOROSIS
     Dosage: 20 UG, DAILY (1/D)
     Dates: start: 20090101
  2. FORTEO [Suspect]
     Dosage: 20 UG, QD
  3. MIRAPEX [Concomitant]
     Dosage: UNK, EACH EVENING
  4. POTASSIUM                          /00031402/ [Concomitant]
     Dosage: 10 MEQ, DAILY (1/D)
  5. SPIRIVA [Concomitant]
     Dosage: UNK, DAILY (1/D)
  6. SYNTHROID [Concomitant]
     Dosage: 50 UG, DAILY (1/D)
  7. LOVAZA [Concomitant]
     Indication: HYPERTENSION
     Dosage: UNK, DAILY (1/D)
  8. FORTEO [Suspect]
     Dosage: 20 UG, DAILY (1/D)
  9. PHENERGAN HCL [Concomitant]
     Dosage: 25 MG, EACH MORNING
  10. VALIUM [Concomitant]
     Dosage: 5 MG, 2/D
  11. CALCIUM [Concomitant]
     Dosage: 1200 MG, DAILY (1/D)
  12. LASIX [Concomitant]
     Dosage: 40 MG, DAILY (1/D)
  13. CARAFATE [Concomitant]
     Indication: GASTRIC ULCER
     Dosage: 1 G, 3/D
  14. LAMICTAL [Concomitant]
     Dosage: 150 MG, DAILY (1/D)
  15. VITAMIN D [Concomitant]
     Dosage: 50000 U, WEEKLY (1/W)
  16. IRON [Concomitant]
     Dosage: 325 MG, DAILY (1/D)
  17. PRILOSEC [Concomitant]
     Dosage: 20 MG, DAILY (1/D)
  18. ASPIRIN [Concomitant]
     Dosage: 81 MG, DAILY (1/D)
  19. PRAVACHOL [Concomitant]
     Indication: BLOOD CHOLESTEROL
     Dosage: 40 MG, EACH EVENING
  20. NITROGLYCERIN [Concomitant]
     Dosage: UNK, AS NEEDED

REACTIONS (22)
  - EMPHYSEMA [None]
  - BACK PAIN [None]
  - GROIN PAIN [None]
  - GASTROENTERITIS VIRAL [None]
  - SYSTEMIC LUPUS ERYTHEMATOSUS [None]
  - BLOOD PRESSURE DECREASED [None]
  - PAIN IN EXTREMITY [None]
  - INJECTION SITE PAIN [None]
  - ABDOMINAL PAIN UPPER [None]
  - MALAISE [None]
  - ERYTHEMA [None]
  - RECTAL HAEMORRHAGE [None]
  - DIARRHOEA [None]
  - ORAL FUNGAL INFECTION [None]
  - DYSPNOEA [None]
  - LUNG DISORDER [None]
  - OXYGEN SATURATION DECREASED [None]
  - MUSCULAR WEAKNESS [None]
  - VARICOSE VEIN [None]
  - NERVE COMPRESSION [None]
  - CARDIAC DISORDER [None]
  - INJECTION SITE HAEMORRHAGE [None]
